FAERS Safety Report 23133817 (Version 1)
Quarter: 2023Q4

REPORT INFORMATION
  Report Type: Spontaneous
  Country: SI (occurrence: SI)
  Receive Date: 20231101
  Receipt Date: 20231101
  Transmission Date: 20240109
  Serious: Yes (Other)
  Sender: FDA-Public Use
  Company Number: SI-002147023-NVSC2023SI035956

PATIENT
  Sex: Female
  Weight: 77 kg

DRUGS (7)
  1. FILGRASTIM [Suspect]
     Active Substance: FILGRASTIM
     Indication: In vitro fertilisation
     Dosage: 0.2 ML X 30 M E./0.5 ML (11:00 EVERY DAY)
     Route: 065
     Dates: start: 20230217, end: 20230222
  2. FILGRASTIM [Suspect]
     Active Substance: FILGRASTIM
     Dosage: 0.3 ML X 30 M E./0.5 ML (11:00 EVERY 3RD DAY)
     Route: 065
     Dates: start: 20230224, end: 20230317
  3. FILGRASTIM [Suspect]
     Active Substance: FILGRASTIM
     Dosage: 0.3 ML X 30 M E./0.5 ML (11:00 EVERY 4TH DAY)
     Route: 065
     Dates: start: 20230321, end: 20230325
  4. FILGRASTIM [Suspect]
     Active Substance: FILGRASTIM
     Dosage: 0.3 ML X 30 M E./0.5 ML (11:00 EVERY 5TH DAY)
     Route: 065
     Dates: start: 20230330, end: 20230404
  5. FILGRASTIM [Suspect]
     Active Substance: FILGRASTIM
     Dosage: 0.3 ML X 30 M E./0.5 ML (11:00 EVERY 6TH DAY)
     Route: 065
     Dates: start: 20230410, end: 20230416
  6. OMEGA 3 [Concomitant]
     Active Substance: CAPSAICIN
     Indication: Product used for unknown indication
     Dosage: 1 DOSAGE FORM, QD (FROM ALGAE, WITHOUT VITAMIN A, 1 CAPSULE PER DAY)
     Route: 065
  7. ZARXIO [Concomitant]
     Active Substance: FILGRASTIM-SNDZ
     Indication: In vitro fertilisation
     Route: 065

REACTIONS (5)
  - Foetal growth restriction [Unknown]
  - Gene mutation [Unknown]
  - Abortion induced [Unknown]
  - Off label use [Unknown]
  - Maternal exposure during pregnancy [Unknown]
